FAERS Safety Report 8910674 (Version 2)
Quarter: 2012Q4

REPORT INFORMATION
  Report Type: Spontaneous
  Country: FR (occurrence: None)
  Receive Date: 20121108
  Receipt Date: 20121114
  Transmission Date: 20130627
  Serious: Yes (Hospitalization)
  Sender: FDA-Public Use
  Company Number: 2012000233

PATIENT
  Age: 61 Year
  Sex: Male

DRUGS (4)
  1. ACEON (PERINDOPRIL ERBUMINE) TABLET [Suspect]
     Indication: HYPERTENSION
     Route: 048
     Dates: start: 20100114, end: 20121004
  2. KARDEGIC (ACETYLSALICYLATE LYSINE) [Concomitant]
  3. MOPRAL (OMEPRAZOLE) [Concomitant]
  4. ROSUVASTATINE (ROSUVASTATIN CALCIUM) [Concomitant]

REACTIONS (4)
  - Atrial fibrillation [None]
  - Feeling abnormal [None]
  - Cough [None]
  - Asphyxia [None]
